FAERS Safety Report 11053850 (Version 2)
Quarter: 2015Q2

REPORT INFORMATION
  Report Type: Spontaneous
  Country: CO (occurrence: CO)
  Receive Date: 20150421
  Receipt Date: 20150427
  Transmission Date: 20150821
  Serious: Yes (Death, Hospitalization)
  Sender: FDA-Public Use
  Company Number: CO-BIOMARINAP-CO-2015-106108

PATIENT
  Age: 10 Year
  Sex: Male
  Weight: 21 kg

DRUGS (1)
  1. NAGLAZYME [Suspect]
     Active Substance: GALSULFASE
     Indication: MUCOPOLYSACCHARIDOSIS
     Dosage: 20 MG, QW
     Route: 042
     Dates: start: 20121102

REACTIONS (2)
  - Cardiac arrest [Fatal]
  - Spinal operation [Unknown]

NARRATIVE: CASE EVENT DATE: 20150314
